FAERS Safety Report 8394766-6 (Version None)
Quarter: 2012Q2

REPORT INFORMATION
  Report Type: 
  Country: None (occurrence: None)
  Receive Date: 20120530
  Receipt Date: 20120517
  Transmission Date: 20120825
  Serious: Yes (Death, Hospitalization, Other)
  Sender: FDA-Public Use
  Company Number: JP-ASTELLAS-2012US003984

PATIENT
  Sex: Female
  Weight: 68 kg

DRUGS (11)
  1. MINOCYCLINE HYDROCHLORIDE [Concomitant]
     Indication: PRODUCT USED FOR UNKNOWN INDICATION
     Dosage: 200 MG, UID/QD
     Route: 048
     Dates: start: 20110929, end: 20111116
  2. KERATINAMIN [Concomitant]
     Indication: PRODUCT USED FOR UNKNOWN INDICATION
     Dosage: UNK
     Route: 003
     Dates: start: 20110929, end: 20111116
  3. HIRUDOID [Concomitant]
     Indication: PRODUCT USED FOR UNKNOWN INDICATION
     Dosage: UNK
     Route: 003
     Dates: start: 20110929, end: 20111116
  4. PRIMPERAN TAB [Concomitant]
     Indication: PRODUCT USED FOR UNKNOWN INDICATION
     Dosage: 15 MG, UID/QD
     Route: 048
     Dates: start: 20111026, end: 20111116
  5. GEMCITABINE [Suspect]
     Dosage: 800 MG/M2, WEEKLY
     Route: 041
     Dates: start: 20111026, end: 20111111
  6. LOXONIN [Concomitant]
     Indication: PRODUCT USED FOR UNKNOWN INDICATION
     Dosage: 60 MG, UNKNOWN/D
     Route: 048
     Dates: start: 20110929, end: 20111116
  7. LENDORMIN [Concomitant]
     Indication: PRODUCT USED FOR UNKNOWN INDICATION
     Dosage: 0.25 MG, UID/QD
     Route: 048
     Dates: start: 20111026, end: 20111116
  8. GEMCITABINE [Suspect]
     Dosage: 800 MG/M2, WEEKLY
     Route: 041
     Dates: start: 20111006, end: 20111012
  9. ERLOTINIB HYDROCHLORIDE [Suspect]
     Indication: ADENOCARCINOMA PANCREAS
     Dosage: 100 MG, UID/QD
     Route: 048
     Dates: start: 20110929, end: 20111116
  10. GEMCITABINE [Suspect]
     Indication: ADENOCARCINOMA PANCREAS
     Dosage: 1000 MG/M2, UID/QD
     Route: 041
     Dates: start: 20110929, end: 20110929
  11. LANSOPRAZOLE [Concomitant]
     Indication: PRODUCT USED FOR UNKNOWN INDICATION
     Dosage: 15 MG, UID/QD
     Route: 048
     Dates: start: 20111019, end: 20111116

REACTIONS (8)
  - RENAL FAILURE [None]
  - METASTASES TO LIVER [None]
  - PLEURAL EFFUSION [None]
  - NEOPLASM MALIGNANT [None]
  - HEPATIC ENCEPHALOPATHY [None]
  - RASH [None]
  - JAUNDICE [None]
  - MALAISE [None]
